FAERS Safety Report 20571601 (Version 2)
Quarter: 2023Q1

REPORT INFORMATION
  Report Type: Spontaneous
  Country: US (occurrence: US)
  Receive Date: 20220309
  Receipt Date: 20230303
  Transmission Date: 20230418
  Serious: No
  Sender: FDA-Public Use
  Company Number: US-SA-SAC20220304000372

PATIENT
  Sex: Female

DRUGS (43)
  1. DUPIXENT [Suspect]
     Active Substance: DUPILUMAB
     Indication: Asthma
     Dosage: 300 MG, QOW
     Route: 058
     Dates: start: 20210423
  2. ALBUTEROL SULFATE [Concomitant]
     Active Substance: ALBUTEROL SULFATE
  3. ATORVASTATIN [Concomitant]
     Active Substance: ATORVASTATIN
  4. BENZONATATE [Concomitant]
     Active Substance: BENZONATATE
  5. CLONAZEPAM [Concomitant]
     Active Substance: CLONAZEPAM
  6. CODEINE [Concomitant]
     Active Substance: CODEINE
  7. DICLOFENAC [Concomitant]
     Active Substance: DICLOFENAC
  8. DULOXETINE [Concomitant]
     Active Substance: DULOXETINE
  9. FAMOTIDINE [Concomitant]
     Active Substance: FAMOTIDINE
  10. FLUCONAZOLE [Concomitant]
     Active Substance: FLUCONAZOLE
  11. INCRUSE ELLIPTA [Concomitant]
     Active Substance: UMECLIDINIUM BROMIDE
  12. LYRICA [Concomitant]
     Active Substance: PREGABALIN
  13. MONTELUKAST SODIUM [Concomitant]
     Active Substance: MONTELUKAST SODIUM
  14. MUCINEX [Concomitant]
     Active Substance: GUAIFENESIN
  15. PREDNISONE [Concomitant]
     Active Substance: PREDNISONE
  16. PREGABALIN [Concomitant]
     Active Substance: PREGABALIN
  17. SERTRALINE [Concomitant]
     Active Substance: SERTRALINE HYDROCHLORIDE
  18. SPIRIVA [Concomitant]
     Active Substance: TIOTROPIUM BROMIDE MONOHYDRATE
  19. TRAZODONE [Concomitant]
     Active Substance: TRAZODONE HYDROCHLORIDE
  20. TRETINOIN [Concomitant]
     Active Substance: TRETINOIN
  21. WIXELA INHUB [Concomitant]
     Active Substance: FLUTICASONE PROPIONATE\SALMETEROL XINAFOATE
  22. METHOCARBAMOL [Concomitant]
     Active Substance: METHOCARBAMOL
  23. DIETHYLPROPION HCL [Concomitant]
  24. DULOXETINE [Concomitant]
     Active Substance: DULOXETINE
  25. AZITHROMYCIN [Concomitant]
     Active Substance: AZITHROMYCIN
  26. BUDESONIDE [Concomitant]
     Active Substance: BUDESONIDE
  27. BUPROPION HYDROCHLORIDE XL [Concomitant]
     Active Substance: BUPROPION HYDROCHLORIDE
  28. CODEINE PHOSPHATE\GUAIFENESIN [Concomitant]
     Active Substance: CODEINE PHOSPHATE\GUAIFENESIN
  29. CHOLESTYRAMINE [Concomitant]
     Active Substance: CHOLESTYRAMINE
  30. ESTRADIOL [Concomitant]
     Active Substance: ESTRADIOL
  31. KENALOG [Concomitant]
     Active Substance: TRIAMCINOLONE ACETONIDE
  32. LAMOTRIGINE [Concomitant]
     Active Substance: LAMOTRIGINE
  33. LEVALBUTEROL [Concomitant]
     Active Substance: LEVALBUTEROL
  34. LOSARTAN POTASSIUM [Concomitant]
     Active Substance: LOSARTAN POTASSIUM
  35. MONTELUKAST [Concomitant]
     Active Substance: MONTELUKAST SODIUM
  36. ROPINIROLE [Concomitant]
     Active Substance: ROPINIROLE
  37. SPIRIVA [Concomitant]
     Active Substance: TIOTROPIUM BROMIDE MONOHYDRATE
  38. SYMBICORT [Concomitant]
     Active Substance: BUDESONIDE\FORMOTEROL FUMARATE DIHYDRATE
  39. TRAMADOL HCL [Concomitant]
     Active Substance: TRAMADOL HYDROCHLORIDE
  40. ESOMEPRAZOLE MAGNESIUM [Concomitant]
     Active Substance: ESOMEPRAZOLE MAGNESIUM
  41. DIETHYLPROPION [AMFEPRAMONE] [Concomitant]
  42. METHYLPREDNISOLONE ACETATE [Concomitant]
     Active Substance: METHYLPREDNISOLONE ACETATE
  43. DEXAMETHASONE\TOBRAMYCIN [Concomitant]
     Active Substance: DEXAMETHASONE\TOBRAMYCIN

REACTIONS (2)
  - Asthma [Unknown]
  - Impaired quality of life [Not Recovered/Not Resolved]
